FAERS Safety Report 7613107-2 (Version None)
Quarter: 2011Q3

REPORT INFORMATION
  Report Type: 
  Country: None (occurrence: None)
  Receive Date: 20110713
  Receipt Date: 20110520
  Transmission Date: 20111222
  Serious: No
  Sender: FDA-Public Use
  Company Number: US-005424

PATIENT
  Sex: Male
  Weight: 101 kg

DRUGS (12)
  1. DEGARELIX 240 MG [Suspect]
     Indication: PROSTATE CANCER
     Dosage: (240 MG 1X SUBCUTANEOUS)
     Route: 058
     Dates: start: 20101019
  2. LEVEMIR [Concomitant]
  3. PLAVIX [Concomitant]
  4. SIMVASTATIN [Concomitant]
  5. CYANOCOBALAMIN [Concomitant]
  6. OMEPRAZOLE [Concomitant]
  7. AMLODIPINE BESYLATE AND BENAZEPRIL HCL [Concomitant]
  8. METFORMIN HCL [Concomitant]
  9. VESICARE [Concomitant]
  10. FUROSEMIDE [Concomitant]
  11. POTASSIUM CHLORIDE [Concomitant]
  12. ATENOLOL [Concomitant]

REACTIONS (3)
  - INJECTION SITE ERYTHEMA [None]
  - INJECTION SITE INDURATION [None]
  - INJECTION SITE PAIN [None]
